FAERS Safety Report 9179530 (Version 1)
Quarter: 2012Q4

REPORT INFORMATION
  Report Type: 
  Country: US (occurrence: US)
  Receive Date: 20121029
  Receipt Date: 20121029
  Transmission Date: 20130627
  Serious: No
  Sender: FDA-Public Use
  Company Number: US-AMGEN-USASP2012052448

PATIENT
  Age: 61 Year
  Sex: Female

DRUGS (3)
  1. ENBREL [Suspect]
     Indication: RHEUMATOID ARTHRITIS
     Dosage: 50 mg, qwk
     Route: 058
     Dates: start: 201201
  2. LIPITOR [Concomitant]
     Dosage: 80 mg, qd
  3. CRESTOR [Concomitant]
     Dosage: 10 mg, UNK

REACTIONS (1)
  - Myalgia [Unknown]
